FAERS Safety Report 20520798 (Version 1)
Quarter: 2022Q1

REPORT INFORMATION
  Report Type: Report from Study
  Country: US (occurrence: US)
  Receive Date: 20220225
  Receipt Date: 20220225
  Transmission Date: 20220423
  Serious: Yes (Death, Other)
  Sender: FDA-Public Use
  Company Number: US-PFIZER INC-202200317575

PATIENT

DRUGS (10)
  1. CYTARABINE [Suspect]
     Active Substance: CYTARABINE
     Indication: Haematological malignancy
     Dosage: UNK, DAILY (1 G/M^2 ON DAYS -9 AND -8)
  2. CLOFARABINE [Suspect]
     Active Substance: CLOFARABINE
     Indication: Haematological malignancy
     Dosage: 40 MG/M2, DAILY
  3. BUSULFAN [Suspect]
     Active Substance: BUSULFAN
     Indication: Haematological malignancy
     Dosage: UNK, 4X/DAY (0.8 MG/KG/DOSE)
  4. CYCLOPHOSPHAMIDE [Suspect]
     Active Substance: CYCLOPHOSPHAMIDE
     Indication: Haematological malignancy
     Dosage: 15 MG/KG, DAILY (ON DAY -5)
  5. CYCLOPHOSPHAMIDE [Suspect]
     Active Substance: CYCLOPHOSPHAMIDE
     Dosage: 50 MG/KG, DAILY (ON DAY +4) AS PROPHYLAXIS
  6. TACROLIMUS [Suspect]
     Active Substance: TACROLIMUS
     Indication: Haematological malignancy
     Dosage: 50 MG/KG, DAILY (ON DAY +4)
  7. MYCOPHENOLATE MOFETIL [Suspect]
     Active Substance: MYCOPHENOLATE MOFETIL
     Indication: Haematological malignancy
     Dosage: STARTING ON DAY +11
  8. PLERIXAFOR [Suspect]
     Active Substance: PLERIXAFOR
     Indication: Haematological malignancy
     Dosage: 0.24 MG/KG, DAILY (ON DAYS -7 AND -6)
  9. LAPINE T-LYMPHOCYTE IMMUNE GLOBULIN [Suspect]
     Active Substance: LAPINE T-LYMPHOCYTE IMMUNE GLOBULIN
     Indication: Haematological malignancy
     Dosage: 1 MG/KG, DAILY (ON DAY -4)
  10. LAPINE T-LYMPHOCYTE IMMUNE GLOBULIN [Suspect]
     Active Substance: LAPINE T-LYMPHOCYTE IMMUNE GLOBULIN
     Dosage: 3 MG/KG, DAILY (ON DAYS -3, -2 AND -1)

REACTIONS (3)
  - Venoocclusive liver disease [Fatal]
  - Multiple organ dysfunction syndrome [Fatal]
  - Venoocclusive disease [Fatal]
